FAERS Safety Report 7673114-0 (Version None)
Quarter: 2011Q3

REPORT INFORMATION
  Report Type: 
  Country: None (occurrence: None)
  Receive Date: 20110810
  Receipt Date: 20110803
  Transmission Date: 20111222
  Serious: Yes (Hospitalization, Other)
  Sender: FDA-Public Use
  Company Number: US-BIOGENIDEC-2011BI026703

PATIENT
  Age: 64 Year
  Sex: Female

DRUGS (3)
  1. AVONEX [Suspect]
     Indication: MULTIPLE SCLEROSIS
     Route: 030
     Dates: start: 20070622
  2. ANTIEPILEPTIC DRUG NOS [Concomitant]
     Indication: PARTIAL SEIZURES
  3. ANTIEPILEPTIC DRUG NOS [Concomitant]
     Indication: GRAND MAL CONVULSION

REACTIONS (6)
  - RENAL DISORDER [None]
  - PARTIAL SEIZURES [None]
  - URINARY TRACT INFECTION [None]
  - GRAND MAL CONVULSION [None]
  - BLADDER OPERATION [None]
  - EYE PRURITUS [None]
